FAERS Safety Report 9046872 (Version 1)
Quarter: 2013Q1

REPORT INFORMATION
  Report Type: Spontaneous
  Country: US (occurrence: None)
  Receive Date: 20130129
  Receipt Date: 20130129
  Transmission Date: 20140127
  Serious: Yes (Other)
  Sender: FDA-Public Use
  Company Number: None

PATIENT
  Age: 44 Year
  Sex: Female
  Weight: 63.5 kg

DRUGS (1)
  1. CIPROFLOXACIN [Suspect]
     Indication: URINARY TRACT INFECTION
     Dates: start: 20121219, end: 20121222

REACTIONS (11)
  - Arthralgia [None]
  - Pain [None]
  - Abasia [None]
  - Pain in extremity [None]
  - Abdominal pain upper [None]
  - Arthralgia [None]
  - Musculoskeletal pain [None]
  - Tendon pain [None]
  - Headache [None]
  - Neck pain [None]
  - Renal pain [None]
